FAERS Safety Report 7310596-8 (Version None)
Quarter: 2011Q1

REPORT INFORMATION
  Report Type: 
  Country: None (occurrence: None)
  Receive Date: 20110224
  Receipt Date: 20100415
  Transmission Date: 20110831
  Serious: No
  Sender: FDA-Public Use
  Company Number: US-BRISTOL-MYERS SQUIBB COMPANY-15024045

PATIENT
  Age: 62 Year
  Sex: Female
  Weight: 73 kg

DRUGS (16)
  1. FLONASE [Concomitant]
  2. ADVAIR HFA [Concomitant]
  3. AMBIEN [Concomitant]
  4. CYMBALTA [Concomitant]
  5. VIVELLE [Concomitant]
  6. CITRACAL + D [Concomitant]
  7. PREVACID [Concomitant]
  8. SLO-MAG [Concomitant]
  9. PAXIL [Concomitant]
  10. ZYRTEC [Concomitant]
  11. ZANTAC [Concomitant]
  12. MUCINEX [Concomitant]
     Dosage: TAKEN OCCASIONALY
  13. GLUCOPHAGE [Suspect]
     Indication: TYPE 2 DIABETES MELLITUS
     Route: 048
  14. RESTASIS [Concomitant]
  15. VITAMIN B-12 [Concomitant]
     Dosage: FORMULATION=INJECTION
  16. REMIFEMIN [Concomitant]

REACTIONS (1)
  - BLOOD GLUCOSE FLUCTUATION [None]
